FAERS Safety Report 6657821-4 (Version None)
Quarter: 2010Q1

REPORT INFORMATION
  Report Type: 
  Country: None (occurrence: None)
  Receive Date: 20100330
  Receipt Date: 20100326
  Transmission Date: 20100710
  Serious: Yes (Life-Threatening, Hospitalization)
  Sender: FDA-Public Use
  Company Number: US-ASTRAZENECA-2010SE05064

PATIENT
  Age: 10165 Day
  Sex: Male
  Weight: 85.7 kg

DRUGS (3)
  1. SEROQUEL XR [Suspect]
     Route: 048
  2. ALCOHOLIC BEVERAGES [Suspect]
  3. CLONAZEPAM [Suspect]

REACTIONS (2)
  - ASPIRATION [None]
  - COMA [None]
